FAERS Safety Report 8663363 (Version 3)
Quarter: 2019Q3

REPORT INFORMATION
  Report Type: Spontaneous
  Country: CA (occurrence: CA)
  Receive Date: 20120713
  Receipt Date: 20190917
  Transmission Date: 20191005
  Serious: Yes (Death, Hospitalization, Other)
  Sender: FDA-Public Use
  Company Number: CA-BAYER-2012-067717

PATIENT
  Age: 14 Year
  Sex: Female

DRUGS (3)
  1. INFLUENZA VACCINE [Concomitant]
     Active Substance: INFLUENZA VIRUS VACCINE
  2. YASMIN [Suspect]
     Active Substance: DROSPIRENONE\ETHINYL ESTRADIOL
     Dosage: UNK
     Route: 048
  3. GARDASIL [Suspect]
     Active Substance: HUMAN PAPILLOMAVIRUS QUADRIVALENT (TYPES 6, 11, 16, AND 18) VACCINE, RECOMBINANT
     Indication: PROPHYLAXIS
     Dosage: UNK
     Route: 051
     Dates: start: 2008

REACTIONS (12)
  - Crying [Recovered/Resolved]
  - Syncope [Recovered/Resolved]
  - Dizziness postural [Recovered/Resolved]
  - Gait inability [Recovered/Resolved]
  - Blood glucose increased [Recovered/Resolved]
  - Loss of consciousness [Recovered/Resolved]
  - Basilar migraine [Recovered/Resolved]
  - Confusional state [Recovered/Resolved]
  - Cardiac arrest [Fatal]
  - Drowning [None]
  - Vomiting [Recovered/Resolved]
  - Asthenia [Recovered/Resolved]
